FAERS Safety Report 6994612-9 (Version None)
Quarter: 2010Q3

REPORT INFORMATION
  Report Type: 
  Country: None (occurrence: None)
  Receive Date: 20100917
  Receipt Date: 20100906
  Transmission Date: 20110219
  Serious: Yes (Death)
  Sender: FDA-Public Use
  Company Number: AT-GENENTECH-305361

PATIENT
  Sex: Male

DRUGS (5)
  1. MABTHERA [Suspect]
     Indication: RHEUMATOID ARTHRITIS
     Dosage: 1 G, UNK
     Route: 042
     Dates: start: 20100716
  2. APREDNISLON [Suspect]
     Indication: RHEUMATOID ARTHRITIS
     Dosage: 5 MG, UNK
     Route: 042
     Dates: start: 19980101
  3. APREDNISLON [Suspect]
     Dosage: 150 MG, UNK
     Route: 042
     Dates: end: 20100805
  4. ENBREL [Suspect]
     Indication: RHEUMATOID ARTHRITIS
     Dosage: 50 MG, UNK
     Route: 058
     Dates: start: 20050101, end: 20100721
  5. FUROSEMID [Concomitant]
     Indication: CARDIAC FAILURE
     Dosage: 40 MG, UNK
     Route: 042
     Dates: end: 20100807

REACTIONS (4)
  - CARDIAC ARREST [None]
  - PNEUMONIA [None]
  - RESPIRATORY ARREST [None]
  - SEPSIS [None]
